FAERS Safety Report 8340098-1 (Version None)
Quarter: 2012Q2

REPORT INFORMATION
  Report Type: 
  Country: None (occurrence: None)
  Receive Date: 20120507
  Receipt Date: 20120502
  Transmission Date: 20120825
  Serious: Yes (Other)
  Sender: FDA-Public Use
  Company Number: US-BAYER-2012-025632

PATIENT
  Age: 53 Year
  Sex: Male
  Weight: 115 kg

DRUGS (23)
  1. LASIX [Concomitant]
  2. TRASYLOL [Suspect]
     Indication: CORONARY ARTERY BYPASS
     Dosage: 1 ML TEST DOSE, 200 ML PUMP PRIME, FOLLOWED BY CONITINUOUS INFUSION OF 50 ML/HR
     Route: 042
     Dates: start: 20060712, end: 20060712
  3. COREG [Concomitant]
  4. RED BLOOD CELLS [Concomitant]
     Dosage: 3 U, UNK
     Route: 042
     Dates: start: 20060712, end: 20060712
  5. LIDOCAINE [Concomitant]
     Dosage: UNK
     Dates: start: 20060712, end: 20060712
  6. NPH INSULIN [Concomitant]
  7. ANCEF [Concomitant]
     Dosage: 2 G, UNK
     Dates: start: 20060712, end: 20060712
  8. MANNITOL [Concomitant]
     Dosage: UNK
     Dates: start: 20060712, end: 20060712
  9. PHENYLEPHRINE HCL [Concomitant]
     Dosage: UNK
     Dates: start: 20060712, end: 20060712
  10. CARDIOPLEGIA [Concomitant]
     Dosage: UNK
     Dates: start: 20060712, end: 20060712
  11. VERSED [Concomitant]
     Dosage: UNK
     Dates: start: 20060712, end: 20060712
  12. FORANE [Concomitant]
     Dosage: UNK
     Dates: start: 20060712, end: 20060712
  13. CAPTOPRIL [Concomitant]
  14. ASPIRIN [Concomitant]
  15. HEPARIN [Concomitant]
     Dosage: UNK
     Dates: start: 20060712, end: 20060712
  16. THROMBIN [Concomitant]
     Dosage: 10000 U, UNK
     Route: 042
     Dates: start: 20060712, end: 20060712
  17. NITROGLYCERIN [Concomitant]
     Dosage: UNK
     Dates: start: 20060712, end: 20060712
  18. FLONASE [Concomitant]
  19. PREVACID [Concomitant]
  20. LIPITOR [Concomitant]
  21. DOBUTAMINE HCL [Concomitant]
     Dosage: UNK
     Dates: start: 20060712, end: 20060712
  22. ETOMIDATE [Concomitant]
     Dosage: UNK
     Dates: start: 20060712, end: 20060712
  23. PAVULON [Concomitant]
     Dosage: UNK
     Dates: start: 20060712, end: 20060712

REACTIONS (1)
  - RENAL FAILURE [None]
